FAERS Safety Report 6359206-7 (Version None)
Quarter: 2009Q3

REPORT INFORMATION
  Report Type: 
  Country: None (occurrence: None)
  Receive Date: 20090917
  Receipt Date: 20070727
  Transmission Date: 20100115
  Serious: Yes (Hospitalization)
  Sender: FDA-Public Use
  Company Number: US-ASTRAZENECA-2007UW02124

PATIENT
  Age: 17997 Day
  Sex: Female
  Weight: 124.3 kg

DRUGS (27)
  1. SEROQUEL [Suspect]
     Indication: BIPOLAR DISORDER
     Route: 048
     Dates: start: 19981101, end: 19990501
  2. SEROQUEL [Suspect]
     Dosage: 300 MG IN THE NOON, 200 MG AT NIGHT
     Route: 048
     Dates: start: 19980724
  3. SEROQUEL [Suspect]
     Dosage: 200 MG NOON AND AT NIGHT
     Route: 048
     Dates: start: 19990429
  4. SEROQUEL [Suspect]
     Route: 048
     Dates: start: 20031008
  5. SEROQUEL [Suspect]
     Dosage: 300 MG AT NIGHT
     Route: 048
     Dates: start: 20041021
  6. SEROQUEL [Suspect]
     Dosage: 150 MG IN THE MORNING AND 300 MG AT NIGHT
     Route: 048
     Dates: start: 20050803
  7. SEROQUEL [Suspect]
     Dosage: 50 MG -300 MG
     Route: 048
     Dates: start: 20070213
  8. ABILIFY [Concomitant]
     Dosage: 10 TO 30 MG
     Dates: start: 20050601
  9. GEODON [Concomitant]
     Dates: start: 20030909
  10. GEODON [Concomitant]
     Dates: start: 20031001, end: 20050501
  11. RISPERDAL [Concomitant]
     Dosage: 1 MG EVERY MORNING AND 2 MG EVERY NIGHT, TOTAL DAILY DOSE 3 MG
     Dates: start: 20010401, end: 20020801
  12. TRILAFON/TRIAVIL [Concomitant]
     Dates: start: 19980101
  13. DEPAKOTE [Concomitant]
     Dosage: 500 TO 1000 MG
     Dates: start: 20040601, end: 20041201
  14. TRAZODONE [Concomitant]
     Route: 048
     Dates: start: 19981028
  15. LITHIUM CARBONATE [Concomitant]
     Route: 048
     Dates: start: 19981028
  16. PROZAC [Concomitant]
     Dosage: 20 MG-40 MG
     Route: 048
     Dates: start: 19970812
  17. WELLBUTRIN SR [Concomitant]
     Dosage: 150 MG EVERY MORNING AND EVENING 100 MG AT NOON
     Route: 048
     Dates: start: 19990519
  18. LOXITANE [Concomitant]
     Dosage: 25 MG-75 MG
     Dates: start: 19990512
  19. IMIPRAMINE [Concomitant]
     Dosage: 50 MG-100 MG
     Route: 048
     Dates: start: 20041021
  20. SULINDAC [Concomitant]
     Dates: start: 20041021
  21. EVISTA [Concomitant]
     Dates: start: 20021010
  22. PAXIL [Concomitant]
     Dosage: 40 MG- 60 MG
     Dates: start: 19980728
  23. XANAX [Concomitant]
     Dates: start: 20030909
  24. METFORMIN HCL [Concomitant]
     Dosage: 500 MG-1500 MG
     Route: 048
     Dates: start: 20041021
  25. ATENOLOL [Concomitant]
     Route: 048
     Dates: start: 20041021
  26. ACCUPRIL [Concomitant]
     Route: 048
     Dates: start: 19970812
  27. BENADRYL [Concomitant]
     Dates: start: 20050427

REACTIONS (13)
  - DIABETES MELLITUS [None]
  - FORAMINOTOMY [None]
  - GASTROOESOPHAGEAL REFLUX DISEASE [None]
  - INCONTINENCE [None]
  - OSTEOPENIA [None]
  - PANIC ATTACK [None]
  - PARAESTHESIA [None]
  - ROTATOR CUFF REPAIR [None]
  - SLEEP APNOEA SYNDROME [None]
  - SLEEP DISORDER [None]
  - SPINAL LAMINECTOMY [None]
  - TYPE 2 DIABETES MELLITUS [None]
  - URINARY INCONTINENCE [None]
